FAERS Safety Report 8645987 (Version 7)
Quarter: 2013Q4

REPORT INFORMATION
  Report Type: Spontaneous
  Country: US (occurrence: US)
  Receive Date: 20120702
  Receipt Date: 20131016
  Transmission Date: 20140711
  Serious: Yes (Hospitalization, Disabling, Other)
  Sender: FDA-Public Use
  Company Number: US-009507513-1206USA04946

PATIENT
  Sex: Female
  Weight: 56.74 kg

DRUGS (3)
  1. FOSAMAX [Suspect]
     Indication: OSTEOPOROSIS
     Dosage: 70 MG, QW
     Route: 048
     Dates: start: 200301, end: 200912
  2. SYNTHROID [Concomitant]
     Indication: HYPOTHYROIDISM
     Dosage: 0.15 MG, QD
     Dates: start: 2000
  3. ARIMIDEX [Concomitant]
     Indication: BREAST CANCER STAGE I
     Dosage: 1 MG, QD
     Dates: start: 200203, end: 200606

REACTIONS (46)
  - Femur fracture [Not Recovered/Not Resolved]
  - Open reduction of fracture [Unknown]
  - Low turnover osteopathy [Not Recovered/Not Resolved]
  - Osteoporosis [Not Recovered/Not Resolved]
  - Multiple fractures [Not Recovered/Not Resolved]
  - Femur fracture [Not Recovered/Not Resolved]
  - Surgery [Unknown]
  - Hip arthroplasty [Unknown]
  - Thyroidectomy [Unknown]
  - Blood cholesterol increased [Unknown]
  - Blood potassium decreased [Unknown]
  - Osteoarthritis [Unknown]
  - Arteriosclerosis [Unknown]
  - Spinal osteoarthritis [Unknown]
  - Fractured ischium [Recovering/Resolving]
  - Fall [Unknown]
  - Fractured ischium [Recovering/Resolving]
  - Dental prosthesis placement [Unknown]
  - Tooth extraction [Unknown]
  - Cough [Recovering/Resolving]
  - Carpal tunnel decompression [Unknown]
  - Thyroid disorder [Unknown]
  - Cataract operation [Unknown]
  - Osteopenia [Unknown]
  - Compression fracture [Unknown]
  - Compression fracture [Unknown]
  - Lumbar spinal stenosis [Unknown]
  - Spondylolisthesis [Unknown]
  - Intervertebral disc protrusion [Unknown]
  - Facet joint syndrome [Unknown]
  - Spinal cord disorder [Unknown]
  - Body height decreased [Unknown]
  - Vitamin D deficiency [Unknown]
  - Osteoarthritis [Unknown]
  - Meniscus removal [Unknown]
  - Meniscus injury [Unknown]
  - Joint injury [Unknown]
  - Osteoarthritis [Unknown]
  - Herpes zoster [Unknown]
  - Foot deformity [Unknown]
  - Skin ulcer [Recovered/Resolved]
  - Spinal claudication [Unknown]
  - Arthralgia [Unknown]
  - Back pain [Unknown]
  - Gastrooesophageal reflux disease [Unknown]
  - Constipation [Unknown]
